FAERS Safety Report 11462631 (Version 1)
Quarter: 2015Q3

REPORT INFORMATION
  Report Type: Spontaneous
  Country: US (occurrence: US)
  Receive Date: 20150831
  Receipt Date: 20150831
  Transmission Date: 20151125
  Serious: No
  Sender: FDA-Public Use
  Company Number: US-ELI_LILLY_AND_COMPANY-US201012005302

PATIENT
  Age: 56 Year
  Sex: Female

DRUGS (2)
  1. CYMBALTA [Suspect]
     Active Substance: DULOXETINE HYDROCHLORIDE
     Dosage: 60 MG, UNKNOWN
  2. CHEMOTHERAPEUTICS [Concomitant]
     Active Substance: UNSPECIFIED INGREDIENT
     Indication: BONE CANCER

REACTIONS (7)
  - Feeling abnormal [Recovered/Resolved]
  - Dizziness [Unknown]
  - Fatigue [Unknown]
  - Confusional state [Unknown]
  - Nausea [Unknown]
  - Memory impairment [Unknown]
  - Somnolence [Unknown]
